FAERS Safety Report 5869515-3 (Version None)
Quarter: 2008Q3

REPORT INFORMATION
  Report Type: 
  Country: None (occurrence: None)
  Receive Date: 20080902
  Receipt Date: 20080821
  Transmission Date: 20090109
  Serious: Yes (Hospitalization, Other)
  Sender: FDA-Public Use
  Company Number: 2008-03094

PATIENT
  Age: 75 Year
  Sex: Male
  Weight: 70.3 kg

DRUGS (5)
  1. VELCADE [Suspect]
     Indication: MANTLE CELL LYMPHOMA
     Dosage: 1.3 MG/M2, INTRAVENOUS
     Route: 042
     Dates: start: 20080509, end: 20080609
  2. RITUXAN [Suspect]
     Indication: MANTLE CELL LYMPHOMA
     Dosage: 750 MG
     Dates: start: 20080509
  3. DEXAMETHASONE TAB [Suspect]
     Indication: MANTLE CELL LYMPHOMA
  4. LISINOPRIL [Concomitant]
  5. SIMVASTATIN [Concomitant]

REACTIONS (3)
  - NEUROPATHY PERIPHERAL [None]
  - OESOPHAGEAL ACHALASIA [None]
  - THROMBOCYTOPENIA [None]
